FAERS Safety Report 6293879-2 (Version None)
Quarter: 2009Q3

REPORT INFORMATION
  Report Type: 
  Country: None (occurrence: None)
  Receive Date: 20090803
  Receipt Date: 20090723
  Transmission Date: 20100115
  Serious: Yes (Hospitalization)
  Sender: FDA-Public Use
  Company Number: NL-ASTRAZENECA-2009SE05756

PATIENT
  Age: 47 Year
  Sex: Male
  Weight: 68 kg

DRUGS (13)
  1. NEXIUM [Suspect]
     Route: 042
     Dates: start: 20090608
  2. EMTHOTREXATE [Interacting]
     Indication: BURKITT'S LYMPHOMA
     Dosage: 3000 MG/M2
     Route: 042
     Dates: start: 20090609
  3. CYTARABINE [Concomitant]
     Route: 037
  4. GRANOCYTE [Concomitant]
     Route: 065
  5. DOXORUBICIN HCL [Concomitant]
     Route: 042
  6. PREDNISON [Concomitant]
     Route: 048
  7. MABTHERA [Concomitant]
     Route: 042
  8. ENDOXAN [Concomitant]
     Route: 042
  9. CIPROFLOXACIN HCL [Concomitant]
     Route: 048
     Dates: start: 20090610, end: 20090622
  10. FUNGIZONE [Concomitant]
     Route: 048
     Dates: start: 20090610, end: 20090611
  11. TEMESTA [Concomitant]
     Route: 042
     Dates: start: 20090611, end: 20090622
  12. RESCUVOLIN [Concomitant]
     Route: 065
     Dates: start: 20060610
  13. LEUCOVORINE [Concomitant]
     Route: 042

REACTIONS (2)
  - DRUG HALF-LIFE INCREASED [None]
  - DRUG INTERACTION [None]
